FAERS Safety Report 8177631-9 (Version None)
Quarter: 2012Q1

REPORT INFORMATION
  Report Type: 
  Country: None (occurrence: None)
  Receive Date: 20120301
  Receipt Date: 20120220
  Transmission Date: 20120608
  Serious: Yes (Hospitalization, Other)
  Sender: FDA-Public Use
  Company Number: PHEH2005US014206

PATIENT
  Sex: Male
  Weight: 84.354 kg

DRUGS (44)
  1. NORTRIPTYLINE HCL [Concomitant]
  2. LENALIDOMIDE [Concomitant]
     Dosage: 10 MG, QD
  3. DEXAMETHASONE [Concomitant]
     Dosage: 40 MG, QD
     Route: 048
  4. VITAMIN E [Concomitant]
  5. DILTIAZEM HCL [Concomitant]
  6. TAMSULOSIN HCL [Concomitant]
  7. HYDROCODONE BITARTRATE [Concomitant]
  8. PAMIDRONATE DISODIUM [Concomitant]
  9. ACETAMINOPHEN [Concomitant]
  10. SIMVASTATIN [Concomitant]
  11. COUMADIN [Concomitant]
  12. PROTON PUMP INHIBITORS [Concomitant]
     Route: 048
  13. CLARINEX                                /USA/ [Concomitant]
  14. AMBIEN [Concomitant]
  15. VITAMIN D [Concomitant]
  16. LORAZEPAM [Concomitant]
     Dosage: 0.5 MG, Q6H
     Dates: start: 20030630
  17. CALCIUM [Concomitant]
  18. AREDIA [Suspect]
     Indication: MULTIPLE MYELOMA
     Dosage: 90 MG, QMO
     Dates: start: 19991006
  19. OXYCONTIN [Concomitant]
     Dosage: 20 MG, UNK
  20. ASPIRIN [Concomitant]
     Dosage: 81 MG, QD
     Dates: start: 20071024
  21. FLOMAX [Concomitant]
     Dosage: 0.4 MG, BID
     Dates: start: 20030630
  22. COMPAZINE [Concomitant]
  23. MULTI-VITAMINS [Concomitant]
  24. REGLAN [Concomitant]
  25. AGGRENOX [Concomitant]
  26. PRILOSEC [Concomitant]
  27. AVODART [Concomitant]
  28. HEPARIN [Concomitant]
  29. ICAPS [Concomitant]
  30. ADVAIR DISKUS 100/50 [Concomitant]
  31. OXYCODONE HCL [Concomitant]
     Dosage: 20 MG, Q12H
     Dates: start: 20040702
  32. REVLIMID [Concomitant]
     Dosage: 10 MG, QMO
  33. DECADRON [Concomitant]
     Dosage: 60 MG, UNK
  34. LENALIDOMIDE [Concomitant]
     Dosage: 25 MG, QD
     Route: 048
  35. DEXAMETHASONE [Concomitant]
     Dosage: 16 MG, QD
  36. CHEMOTHERAPEUTICS NOS [Concomitant]
  37. PREVACID [Concomitant]
     Dosage: 30 MG, BID
     Dates: start: 20040603
  38. PREDNISONE [Concomitant]
  39. ALLOPURINOL [Concomitant]
     Dosage: 300 MG, QD
     Dates: start: 20030630
  40. PROCHLORPERAZINE MALEATE [Concomitant]
     Dosage: 10 MG, BID
     Dates: start: 20051019
  41. LEVAQUIN [Concomitant]
     Dosage: 500 MG, QD
     Route: 048
  42. CLARITIN [Concomitant]
  43. LOVAZA [Concomitant]
  44. LASIX [Concomitant]

REACTIONS (97)
  - CHEST DISCOMFORT [None]
  - PAIN [None]
  - TENDERNESS [None]
  - TOOTH DISORDER [None]
  - FEELING JITTERY [None]
  - MEMORY IMPAIRMENT [None]
  - DEMENTIA [None]
  - CHRONIC OBSTRUCTIVE PULMONARY DISEASE [None]
  - TRANSIENT ISCHAEMIC ATTACK [None]
  - INTERVERTEBRAL DISC SPACE NARROWING [None]
  - KYPHOSIS [None]
  - OSTEOPENIA [None]
  - CONSTIPATION [None]
  - ONYCHALGIA [None]
  - CANDIDIASIS [None]
  - GENERAL PHYSICAL HEALTH DETERIORATION [None]
  - PANCYTOPENIA [None]
  - SMALL INTESTINAL OBSTRUCTION [None]
  - BREAKTHROUGH PAIN [None]
  - FATIGUE [None]
  - BLADDER OBSTRUCTION [None]
  - ABDOMINAL DISCOMFORT [None]
  - NAIL DISORDER [None]
  - ASTHENIA [None]
  - SKIN ULCER [None]
  - NAUSEA [None]
  - KERATOACANTHOMA [None]
  - PHLEBITIS [None]
  - ARTHRITIS [None]
  - DIZZINESS [None]
  - GASTROOESOPHAGEAL REFLUX DISEASE [None]
  - OESOPHAGITIS [None]
  - SINUSITIS [None]
  - TOOTHACHE [None]
  - CATARACT [None]
  - MULTIPLE MYELOMA [None]
  - URINE FLOW DECREASED [None]
  - DEAFNESS [None]
  - SUBCUTANEOUS HAEMATOMA [None]
  - DECREASED ACTIVITY [None]
  - PERIPHERAL VASCULAR DISORDER [None]
  - GASTROINTESTINAL HAEMORRHAGE [None]
  - ANXIETY [None]
  - IMPAIRED HEALING [None]
  - NEUROPATHY PERIPHERAL [None]
  - BLOOD PRESSURE INCREASED [None]
  - DEEP VEIN THROMBOSIS [None]
  - PROSTATOMEGALY [None]
  - HAEMORRHOIDS [None]
  - HERPES ZOSTER [None]
  - URINARY TRACT OBSTRUCTION [None]
  - CEREBELLAR INFARCTION [None]
  - HOT FLUSH [None]
  - MUSCULOSKELETAL DISCOMFORT [None]
  - PAIN IN EXTREMITY [None]
  - CERUMEN IMPACTION [None]
  - STASIS DERMATITIS [None]
  - DEPRESSION [None]
  - OSTEONECROSIS OF JAW [None]
  - DECREASED INTEREST [None]
  - BONE LESION [None]
  - IMPAIRED WORK ABILITY [None]
  - MALAISE [None]
  - WEIGHT DECREASED [None]
  - ATELECTASIS [None]
  - CEREBRAL ATROPHY [None]
  - VENOOCCLUSIVE DISEASE [None]
  - SEBORRHOEIC KERATOSIS [None]
  - LUNG HYPERINFLATION [None]
  - OEDEMA PERIPHERAL [None]
  - PALPITATIONS [None]
  - BLOOD CREATININE DECREASED [None]
  - RHINORRHOEA [None]
  - HYPERKERATOSIS [None]
  - PARAESTHESIA [None]
  - BACK PAIN [None]
  - GASTRITIS EROSIVE [None]
  - AGE-RELATED MACULAR DEGENERATION [None]
  - TOOTH INFECTION [None]
  - DYSURIA [None]
  - CONFUSIONAL STATE [None]
  - ATRIAL FIBRILLATION [None]
  - NEOPLASM MALIGNANT [None]
  - ARTERIOSCLEROSIS [None]
  - ONYCHOMYCOSIS [None]
  - PNEUMONIA [None]
  - ORAL DISCOMFORT [None]
  - URINARY RETENTION [None]
  - URINARY TRACT INFECTION [None]
  - WALKING AID USER [None]
  - HAEMORRHAGE [None]
  - INTERVERTEBRAL DISC DEGENERATION [None]
  - SQUAMOUS CELL CARCINOMA OF SKIN [None]
  - INTERSTITIAL LUNG DISEASE [None]
  - NOCTURIA [None]
  - GASTROINTESTINAL DISORDER [None]
  - ORAL PAIN [None]
